FAERS Safety Report 6200283-1 (Version None)
Quarter: 2009Q2

REPORT INFORMATION
  Report Type: 
  Country: None (occurrence: None)
  Receive Date: 20090522
  Receipt Date: 20071004
  Transmission Date: 20091009
  Serious: No
  Sender: FDA-Public Use
  Company Number: US-ALEXION-A200700066

PATIENT
  Sex: Male

DRUGS (8)
  1. SOLIRIS [Suspect]
     Indication: PAROXYSMAL NOCTURNAL HAEMOGLOBINURIA
     Dosage: 600 MG, SINGLE
     Route: 042
     Dates: start: 20070817, end: 20070817
  2. SOLIRIS [Suspect]
     Dosage: 600 MG, SINGLE
     Route: 042
     Dates: start: 20070831, end: 20070831
  3. SOLIRIS [Suspect]
     Dosage: 600 MG, SINGLE
     Route: 042
     Dates: start: 20070907, end: 20070907
  4. SOLIRIS [Suspect]
     Dosage: 600 MG, SINGLE
     Route: 042
     Dates: start: 20070914, end: 20070914
  5. SOLIRIS [Suspect]
     Dosage: 600 MG, SINGLE
     Route: 042
     Dates: start: 20070921, end: 20070921
  6. SOLIRIS [Suspect]
     Dosage: 900 MG, SINGLE
     Route: 042
     Dates: start: 20070928, end: 20070928
  7. VICODIN [Concomitant]
     Indication: PAIN
     Dosage: UNK, PRN
     Route: 048
  8. ANTIHYPERTENSIVES [Concomitant]
     Indication: HYPERTENSION
     Route: 048

REACTIONS (4)
  - BLOOD BILIRUBIN INCREASED [None]
  - DIZZINESS [None]
  - FATIGUE [None]
  - HEADACHE [None]
